FAERS Safety Report 8397918-4 (Version None)
Quarter: 2012Q2

REPORT INFORMATION
  Report Type: 
  Country: None (occurrence: None)
  Receive Date: 20120531
  Receipt Date: 20120527
  Transmission Date: 20120825
  Serious: Yes (Death)
  Sender: FDA-Public Use
  Company Number: PHHO2012EG007779

PATIENT
  Sex: Female

DRUGS (2)
  1. EXELON [Suspect]
     Indication: DEMENTIA
     Dosage: 9 MG
     Route: 048
     Dates: start: 20120516
  2. QUETIAPINE [Concomitant]
     Indication: INSOMNIA
     Dosage: 25 MG, UNK
     Dates: start: 20120516

REACTIONS (2)
  - HAEMATEMESIS [None]
  - ASPIRATION [None]
